FAERS Safety Report 15320202 (Version 2)
Quarter: 2018Q3

REPORT INFORMATION
  Report Type: Spontaneous
  Country: US (occurrence: US)
  Receive Date: 20180827
  Receipt Date: 20180829
  Transmission Date: 20181010
  Serious: Yes (Hospitalization)
  Sender: FDA-Public Use
  Company Number: US-PFIZER INC-2018340046

PATIENT
  Age: 54 Year
  Sex: Male
  Weight: 55 kg

DRUGS (2)
  1. MERREM [Suspect]
     Active Substance: MEROPENEM
     Indication: CYSTITIS
     Dosage: UNK
     Route: 042
  2. VANCOMYCIN HCL [Suspect]
     Active Substance: VANCOMYCIN HYDROCHLORIDE
     Indication: CYSTITIS
     Dosage: UNK
     Route: 042

REACTIONS (2)
  - Dysuria [Not Recovered/Not Resolved]
  - Urine analysis abnormal [Not Recovered/Not Resolved]
